FAERS Safety Report 25743697 (Version 1)
Quarter: 2025Q3

REPORT INFORMATION
  Report Type: Spontaneous
  Country: US (occurrence: US)
  Receive Date: 20250831
  Receipt Date: 20250831
  Transmission Date: 20251020
  Serious: Yes (Other)
  Sender: SANOFI AVENTIS
  Company Number: US-SANOFI-02633439

PATIENT
  Age: 34 Year
  Sex: Female

DRUGS (1)
  1. LANTUS SOLOSTAR [Suspect]
     Active Substance: INSULIN GLARGINE
     Indication: Diabetes mellitus
     Dosage: 30 IU, BID

REACTIONS (9)
  - Cardiac arrest [Recovered/Resolved with Sequelae]
  - Embolism [Recovered/Resolved with Sequelae]
  - Coma [Recovered/Resolved with Sequelae]
  - Quadriplegia [Recovered/Resolved with Sequelae]
  - Paraplegia [Recovered/Resolved with Sequelae]
  - Decubitus ulcer [Recovered/Resolved with Sequelae]
  - Orthognathic surgery [Unknown]
  - Prescription drug used without a prescription [Unknown]
  - Inappropriate schedule of product administration [Unknown]

NARRATIVE: CASE EVENT DATE: 20200101
